FAERS Safety Report 9638744 (Version 1)
Quarter: 2013Q4

REPORT INFORMATION
  Report Type: Spontaneous
  Country: US (occurrence: US)
  Receive Date: 20131022
  Receipt Date: 20131022
  Transmission Date: 20140711
  Serious: Yes (Hospitalization)
  Sender: FDA-Public Use
  Company Number: US-BRISTOL-MYERS SQUIBB COMPANY-19220821

PATIENT
  Age: 84 Year
  Sex: Female
  Weight: 77.1 kg

DRUGS (1)
  1. ELIQUIS [Suspect]
     Dates: start: 20130807, end: 20130818

REACTIONS (1)
  - Haemoglobin decreased [Unknown]
